FAERS Safety Report 17683266 (Version 1)
Quarter: 2020Q2

REPORT INFORMATION
  Report Type: Report from Study
  Country: US (occurrence: US)
  Receive Date: 20200420
  Receipt Date: 20200420
  Transmission Date: 20200714
  Serious: Yes (Hospitalization)
  Sender: FDA-Public Use
  Company Number: US-TEVA-2020-US-1223068

PATIENT
  Age: 33 Year
  Sex: Male
  Weight: 92.3 kg

DRUGS (6)
  1. DEXAMETHASONE. [Suspect]
     Active Substance: DEXAMETHASONE
     Indication: PRECURSOR B-LYMPHOBLASTIC LYMPHOMA
     Route: 065
     Dates: start: 20200124, end: 20200213
  2. DAUNORUBICIN [Suspect]
     Active Substance: DAUNORUBICIN
     Indication: PRECURSOR B-LYMPHOBLASTIC LYMPHOMA
     Dosage: 53 MILLIGRAM DAILY;
     Route: 065
     Dates: start: 20200214, end: 20200214
  3. VINCRISTINE [Suspect]
     Active Substance: VINCRISTINE
     Indication: PRECURSOR B-LYMPHOBLASTIC LYMPHOMA
     Dosage: 2 MILLIGRAM DAILY;
     Route: 065
     Dates: start: 20200214, end: 20200214
  4. METHOTREXATE. [Suspect]
     Active Substance: METHOTREXATE
     Indication: PRECURSOR B-LYMPHOBLASTIC LYMPHOMA
     Dosage: 30 MILLIGRAM DAILY;
     Route: 065
     Dates: start: 20200131, end: 20200221
  5. CYTARABINE. [Suspect]
     Active Substance: CYTARABINE
     Indication: PRECURSOR B-LYMPHOBLASTIC LYMPHOMA
     Route: 065
     Dates: start: 20200124, end: 20200124
  6. INOTUZUMAB OZOGAMICIN [Suspect]
     Active Substance: INOTUZUMAB OZOGAMICIN
     Indication: PRECURSOR B-LYMPHOBLASTIC LYMPHOMA
     Route: 065
     Dates: start: 20200226

REACTIONS (1)
  - Febrile neutropenia [Unknown]

NARRATIVE: CASE EVENT DATE: 20200226
